FAERS Safety Report 16599609 (Version 2)
Quarter: 2019Q3

REPORT INFORMATION
  Report Type: Spontaneous
  Country: FR (occurrence: FR)
  Receive Date: 20190720
  Receipt Date: 20190923
  Transmission Date: 20191004
  Serious: Yes (Hospitalization, Other)
  Sender: FDA-Public Use
  Company Number: FR-AUROBINDO-AUR-APL-2019-041917

PATIENT
  Age: 45 Year
  Sex: Male
  Weight: 115 kg

DRUGS (12)
  1. AERIUS [EBASTINE] [Suspect]
     Active Substance: EBASTINE
     Indication: PRODUCT USED FOR UNKNOWN INDICATION
     Dosage: 5 MILLIGRAM, ONCE A DAY
     Route: 048
  2. TWYNSTA [Suspect]
     Active Substance: AMLODIPINE BESYLATE\TELMISARTAN
     Indication: HYPERTENSION
     Dosage: 1 DOSAGE FORM, ONCE A DAY
     Route: 048
     Dates: end: 20190607
  3. SPIRIVA RESPIMAT [Suspect]
     Active Substance: TIOTROPIUM BROMIDE
     Indication: ASTHMA
     Dosage: 5 MICROGRAM, ONCE A DAY
     Route: 055
  4. PHYSIOTENS [Suspect]
     Active Substance: MOXONIDINE
     Indication: HYPERTENSION
     Route: 048
     Dates: end: 20190607
  5. ELIQUIS [Suspect]
     Active Substance: APIXABAN
     Indication: ATRIAL FIBRILLATION
     Dosage: 10 MILLIGRAM, ONCE A DAY
     Route: 048
  6. SINGULAIR [Suspect]
     Active Substance: MONTELUKAST SODIUM
     Indication: ASTHMA
     Dosage: 10 MILLIGRAM, ONCE A DAY
     Route: 048
  7. TERBUTALINE [Suspect]
     Active Substance: TERBUTALINE
     Indication: ASTHMA
     Dosage: 20 MILLIGRAM, ONCE A DAY
     Route: 048
     Dates: start: 20190415
  8. IPRATROPIUM [Suspect]
     Active Substance: IPRATROPIUM
     Indication: ASTHMA
     Dosage: 2 MILLIGRAM, ONCE A DAY
     Route: 048
     Dates: start: 20190415
  9. BISOPROLOL [Suspect]
     Active Substance: BISOPROLOL
     Indication: ATRIAL FIBRILLATION
     Dosage: 2.5 MILLIGRAM, ONCE A DAY
     Route: 048
     Dates: end: 20190603
  10. LODOZ [Suspect]
     Active Substance: BISOPROLOL FUMARATE\HYDROCHLOROTHIAZIDE
     Indication: ATRIAL FIBRILLATION
     Dosage: 2 DOSAGE FORM, ONCE A DAY
     Route: 048
     Dates: end: 20190605
  11. INEXIUM [Suspect]
     Active Substance: ESOMEPRAZOLE
     Indication: PEPTIC ULCER
     Dosage: 120 MILLIGRAM, ONCE A DAY
     Route: 048
     Dates: end: 20190607
  12. INNOVAIR [Suspect]
     Active Substance: BECLOMETHASONE DIPROPIONATE\FORMOTEROL
     Indication: ASTHMA
     Dosage: 1 DOSAGE FORM, ONCE A DAY
     Route: 055

REACTIONS (2)
  - Hyperkalaemia [Recovered/Resolved]
  - Hyperkaliuria [Recovered/Resolved]

NARRATIVE: CASE EVENT DATE: 20190603
